FAERS Safety Report 5001583-3 (Version None)
Quarter: 2006Q2

REPORT INFORMATION
  Report Type: 
  Country: None (occurrence: None)
  Receive Date: 20060411
  Receipt Date: 20060411
  Transmission Date: 20061013
  Serious: Yes (Death)
  Sender: FDA-Public Use
  Company Number: None

PATIENT
  Age: 70 Year
  Sex: Male
  Weight: 87.9978 kg

DRUGS (6)
  1. CARBOPLATIN [Suspect]
     Indication: TONSIL CANCER
     Dosage: 618 MG IV
     Route: 042
     Dates: start: 20050127
  2. CARBOPLATIN [Suspect]
     Indication: TONSIL CANCER
     Dosage: 618 MG IV
     Route: 042
     Dates: start: 20050224
  3. IFOSFAMIDE [Suspect]
     Indication: TONSIL CANCER
     Dosage: 60 MG IV
     Route: 042
     Dates: start: 20050127
  4. IFOSFAMIDE [Suspect]
     Indication: TONSIL CANCER
     Dosage: 60 MG IV
     Route: 042
     Dates: start: 20050203
  5. MESNA [Suspect]
     Indication: TONSIL CANCER
     Dosage: 2000 MG IV
     Route: 042
     Dates: start: 20050210
  6. TAXOTERE [Suspect]
     Indication: TONSIL CANCER
     Dosage: 1000MG
     Dates: start: 20050222

REACTIONS (1)
  - DEATH [None]
